FAERS Safety Report 11408594 (Version 1)
Quarter: 2015Q3

REPORT INFORMATION
  Report Type: Spontaneous
  Country: GB (occurrence: GB)
  Receive Date: 20150822
  Receipt Date: 20150822
  Transmission Date: 20151125
  Serious: Yes (Disabling)
  Sender: FDA-Public Use
  Company Number: GB-ACCORD-033095

PATIENT
  Age: 55 Year
  Sex: Female
  Weight: 55.33 kg

DRUGS (5)
  1. SIMVASTATIN. [Suspect]
     Active Substance: SIMVASTATIN
     Indication: HYPERCHOLESTEROLAEMIA
     Route: 048
     Dates: start: 201504, end: 201507
  2. QUETIAPINE/QUETIAPINE FUMARATE [Concomitant]
  3. SERTRALINE [Concomitant]
     Active Substance: SERTRALINE HYDROCHLORIDE
  4. PREGABALIN. [Concomitant]
     Active Substance: PREGABALIN
  5. DIAZEPAM. [Concomitant]
     Active Substance: DIAZEPAM
     Dosage: OCCASIONAL

REACTIONS (4)
  - Muscle strain [Recovering/Resolving]
  - Back pain [Recovering/Resolving]
  - Ligament pain [Recovering/Resolving]
  - Arthralgia [Recovering/Resolving]
